FAERS Safety Report 7885129-8 (Version None)
Quarter: 2011Q4

REPORT INFORMATION
  Report Type: 
  Country: None (occurrence: None)
  Receive Date: 20111102
  Receipt Date: 20111028
  Transmission Date: 20120403
  Serious: Yes (Life-Threatening, Hospitalization)
  Sender: FDA-Public Use
  Company Number: US-ROCHE-789140

PATIENT
  Age: 74 Year
  Sex: Female
  Weight: 61.2 kg

DRUGS (6)
  1. PACLITAXEL [Suspect]
     Indication: MALIGNANT PERITONEAL NEOPLASM
     Dosage: INTRAVENOUS OVER 3 HRS ON DAY 1229.5 MG GIVEN ON 25 MAY 2011
     Route: 050
  2. CISPLATIN [Suspect]
     Indication: MALIGNANT PERITONEAL NEOPLASM
     Dosage: ON DAY 2, TOTAL DOSE: 127.5, LAST ADMINSTRATION 26 MAY 2011.
     Route: 033
  3. PACLITAXEL [Suspect]
     Dosage: INTRAPERITONEAL ON DAY 8, TOTAL DOSE 331.5 MG, LAST DOSE ADMINSTARTION: 01 JUNE 2011
     Route: 050
  4. ONDANSETRON HYDROCHLORIDE [Suspect]
     Indication: PRODUCT USED FOR UNKNOWN INDICATION
     Route: 065
  5. AVASTIN [Suspect]
     Indication: MALIGNANT PERITONEAL NEOPLASM
     Dosage: TOTAL DOSE: 990 MG, OVER 30-90 MIN, LAST DOSE ADMINSTARTION 25 MAY 2011
     Route: 042
  6. LORAZEPAM [Concomitant]

REACTIONS (7)
  - ANXIETY [None]
  - HYPOMAGNESAEMIA [None]
  - NAUSEA [None]
  - CONSTIPATION [None]
  - HYPERTENSION [None]
  - ANGINA PECTORIS [None]
  - DEPRESSION [None]
